FAERS Safety Report 4585810-2 (Version None)
Quarter: 2005Q1

REPORT INFORMATION
  Report Type: 
  Country: None (occurrence: None)
  Receive Date: 20050216
  Receipt Date: 20050202
  Transmission Date: 20050727
  Serious: Yes (Death)
  Sender: FDA-Public Use
  Company Number: 2005-DE-00413GD

PATIENT
  Sex: 0

DRUGS (2)
  1. COCAINE (COCAINE) [Suspect]
  2. SSRI (SSRI) [Suspect]

REACTIONS (6)
  - ACCIDENT [None]
  - ACCIDENTAL DEATH [None]
  - ACCIDENTAL OVERDOSE [None]
  - COMPLETED SUICIDE [None]
  - DRUG ABUSER [None]
  - INJURY [None]
